FAERS Safety Report 15166801 (Version 1)
Quarter: 2018Q3

REPORT INFORMATION
  Report Type: Spontaneous
  Country: CA (occurrence: CA)
  Receive Date: 20180719
  Receipt Date: 20180719
  Transmission Date: 20181010
  Serious: Yes (Hospitalization)
  Sender: FDA-Public Use
  Company Number: CA-ASTRAZENECA-2018SE89385

PATIENT
  Age: 42 Year
  Sex: Female

DRUGS (5)
  1. METFORMIN [Concomitant]
     Active Substance: METFORMIN HYDROCHLORIDE
  2. PERINDOPRIL [Concomitant]
     Active Substance: PERINDOPRIL
  3. FORXIGA [Suspect]
     Active Substance: DAPAGLIFLOZIN
     Indication: TYPE 2 DIABETES MELLITUS
     Route: 048
  4. ASA [Concomitant]
     Active Substance: ASPIRIN
  5. ROSUVASTATIN. [Concomitant]
     Active Substance: ROSUVASTATIN

REACTIONS (16)
  - Intensive care [Recovered/Resolved]
  - Urine ketone body present [Recovered/Resolved]
  - Hypomagnesaemia [Recovered/Resolved]
  - Metabolic acidosis [Recovered/Resolved]
  - Pneumonia [Recovered/Resolved]
  - Thirst [Recovered/Resolved]
  - Blood glucose abnormal [Recovered/Resolved]
  - Dizziness [Recovered/Resolved]
  - Headache [Recovered/Resolved]
  - Hypokalaemia [Recovered/Resolved]
  - Blood creatinine abnormal [Recovered/Resolved]
  - Cough [Recovered/Resolved]
  - Blood urea abnormal [Recovered/Resolved]
  - Nausea [Recovered/Resolved]
  - Vomiting [Recovered/Resolved]
  - Polyuria [Recovered/Resolved]
